FAERS Safety Report 21963096 (Version 1)
Quarter: 2023Q1

REPORT INFORMATION
  Report Type: Report from Study
  Country: US (occurrence: US)
  Receive Date: 20230207
  Receipt Date: 20230207
  Transmission Date: 20230418
  Serious: No
  Sender: FDA-Public Use
  Company Number: US-AMRYT PHARMACEUTICALS DAC-AEGR006129

PATIENT
  Age: 57 Year
  Sex: Male

DRUGS (25)
  1. METRELEPTIN [Suspect]
     Active Substance: METRELEPTIN
     Indication: Familial partial lipodystrophy
     Dosage: 2.5 MILLIGRAM, QD
     Dates: start: 20180716, end: 20200227
  2. METRELEPTIN [Suspect]
     Active Substance: METRELEPTIN
     Dosage: 3.75 MILLIGRAM, QD
     Dates: start: 20200228
  3. LYRICA [Concomitant]
     Active Substance: PREGABALIN
     Indication: Neuropathy peripheral
     Dosage: 600 MILLIGRAM, BID
     Route: 048
     Dates: start: 201607, end: 20200227
  4. LYRICA [Concomitant]
     Active Substance: PREGABALIN
     Dosage: 150 MILLIGRAM, BID
     Route: 048
     Dates: start: 20180629
  5. VITAMIN D3 [Concomitant]
     Active Substance: CHOLECALCIFEROL
     Indication: Supplementation therapy
     Dosage: 4000 INTERNATIONAL UNIT, QD
     Route: 048
     Dates: start: 20180102
  6. GLIPIZIDE [Concomitant]
     Active Substance: GLIPIZIDE
     Indication: Diabetes mellitus
     Dosage: 10 MILLIGRAM, BID
     Route: 048
     Dates: start: 2010, end: 20190619
  7. METFORMIN [Concomitant]
     Active Substance: METFORMIN HYDROCHLORIDE
     Indication: Diabetes mellitus
     Dosage: 1000 MILLIGRAM, BID
     Dates: start: 2011, end: 20190619
  8. ACTOS [Concomitant]
     Active Substance: PIOGLITAZONE HYDROCHLORIDE
     Indication: Diabetes mellitus
     Dosage: 30 MILLIGRAM, QD
     Route: 048
     Dates: start: 2010, end: 20190619
  9. INVOKANA [Concomitant]
     Active Substance: CANAGLIFLOZIN
     Indication: Diabetes mellitus
     Dosage: 300 MILLIGRAM, QD
     Route: 048
     Dates: start: 2013, end: 20190619
  10. LANTUS [Concomitant]
     Active Substance: INSULIN GLARGINE
     Indication: Diabetes mellitus
     Dosage: 80 IU INTERNATIONAL UNIT(S), QD
     Route: 058
     Dates: start: 20180620, end: 20190103
  11. HUMALOG [Concomitant]
     Active Substance: INSULIN LISPRO
     Indication: Diabetes mellitus
     Dosage: 30 IU INTERNATIONAL UNIT(S), TID
     Route: 058
     Dates: start: 2014, end: 2019
  12. HUMALOG [Concomitant]
     Active Substance: INSULIN LISPRO
     Dosage: 12 IU INTERNATIONAL UNIT(S), TID/W MEALS
     Route: 058
     Dates: start: 20191115
  13. FENOFIBRATE [Concomitant]
     Active Substance: FENOFIBRATE
     Indication: Hypertriglyceridaemia
     Dosage: 145 MILLIGRAM, QD
     Route: 048
     Dates: start: 2014, end: 20190619
  14. FENOFIBRATE [Concomitant]
     Active Substance: FENOFIBRATE
     Dosage: 160 MILLIGRAM, QD
     Route: 048
     Dates: start: 20210901
  15. ATORVASTATIN [Concomitant]
     Active Substance: ATORVASTATIN
     Indication: Hypertriglyceridaemia
     Dosage: 10 MILLIGRAM, QD
     Route: 048
     Dates: start: 2014, end: 20190619
  16. LEVOTHYROXINE [Concomitant]
     Active Substance: LEVOTHYROXINE
     Indication: Hypothyroidism
     Dosage: 250 UG, QD
     Dates: start: 20180615, end: 201810
  17. LEVOTHYROXINE [Concomitant]
     Active Substance: LEVOTHYROXINE
     Dosage: 300 UG, QD
     Route: 048
     Dates: start: 201810
  18. INSULIN LISPRO [Concomitant]
     Active Substance: INSULIN LISPRO
     Indication: Diabetes mellitus
     Dosage: 80 INTERNATIONAL UNIT, BID
     Route: 058
     Dates: start: 20190104, end: 20191031
  19. INSULIN LISPRO [Concomitant]
     Active Substance: INSULIN LISPRO
     Dosage: 85 INTERNATIONAL UNIT, BID
     Route: 058
     Dates: start: 20191101, end: 20220506
  20. INSULIN LISPRO [Concomitant]
     Active Substance: INSULIN LISPRO
     Dosage: 65 IU INTERNATIONAL UNIT(S), BID
     Route: 058
     Dates: start: 20220506
  21. NOVOLOG [Concomitant]
     Active Substance: INSULIN ASPART
     Indication: Hyperglycaemia
     Dosage: 15 IU INTERNATIONAL UNIT(S), SINGLE
     Route: 058
     Dates: start: 20201221, end: 20201221
  22. NOVOLOG [Concomitant]
     Active Substance: INSULIN ASPART
     Dosage: 90 IU INTERNATIONAL UNIT(S), PRN
     Route: 058
     Dates: start: 20220112
  23. REGEN-COV [Concomitant]
     Active Substance: CASIRIVIMAB\IMDEVIMAB
     Indication: COVID-19
     Dosage: 600 MILLIGRAM, SINGLE
     Route: 042
     Dates: start: 20191019, end: 20191019
  24. CEPHALEXIN [Concomitant]
     Active Substance: CEPHALEXIN
     Indication: Cellulitis
     Dosage: 500 MILLIGRAM, QID
     Route: 048
     Dates: start: 20220809
  25. SILDENAFIL [Concomitant]
     Active Substance: SILDENAFIL
     Indication: Erectile dysfunction
     Dosage: 1 TABLET, PRN
     Dates: start: 20211103

REACTIONS (2)
  - Thermal burn [Recovered/Resolved]
  - Off label use [Unknown]

NARRATIVE: CASE EVENT DATE: 20210824
